FAERS Safety Report 11217830 (Version 1)
Quarter: 2015Q2

REPORT INFORMATION
  Report Type: Report from Study
  Country: DE (occurrence: None)
  Receive Date: 20150623
  Receipt Date: 20150623
  Transmission Date: 20150821
  Serious: Yes (Death)
  Sender: FDA-Public Use
  Company Number: KAD201506-001743

PATIENT
  Sex: Male
  Weight: 86 kg

DRUGS (2)
  1. RIBAVIRIN (RIBAVIRIN) [Suspect]
     Active Substance: RIBAVIRIN
     Route: 048
     Dates: end: 20131017
  2. SOFOSBUVIR/GS-5885 (SOFOSBUVIR, LEDIPASVIR) [Suspect]
     Active Substance: LEDIPASVIR\SOFOSBUVIR
     Route: 048
     Dates: end: 20131017

REACTIONS (2)
  - T-cell type acute leukaemia [None]
  - Bronchopulmonary aspergillosis [None]

NARRATIVE: CASE EVENT DATE: 20150412
